FAERS Safety Report 6198042-1 (Version None)
Quarter: 2009Q2

REPORT INFORMATION
  Report Type: 
  Country: None (occurrence: None)
  Receive Date: 20090521
  Receipt Date: 20090512
  Transmission Date: 20091009
  Serious: Yes (Hospitalization)
  Sender: FDA-Public Use
  Company Number: US-JNJFOC-20090402136

PATIENT
  Sex: Female
  Weight: 85.8 kg

DRUGS (8)
  1. BLINDED; INFLIXIMAB, RECOMBINANT [Suspect]
     Indication: HEPATITIS C VIRUS TEST
     Route: 042
  2. PLACEBO [Suspect]
     Indication: HEPATITIS C VIRUS TEST
     Route: 042
  3. PEG-INTRON [Suspect]
     Indication: HEPATITIS C VIRUS TEST
     Route: 058
  4. RIBAVIRIN [Suspect]
     Indication: HEPATITIS C VIRUS TEST
     Route: 048
  5. HYDROCHLOROTHIAZIDE [Concomitant]
  6. VERAPAMIL [Concomitant]
     Indication: HYPERTENSION
  7. IMITREX [Concomitant]
     Dosage: AS NECESSARY
  8. LISINOPRIL [Concomitant]

REACTIONS (2)
  - DIARRHOEA [None]
  - MYALGIA [None]
